FAERS Safety Report 5625832-3 (Version None)
Quarter: 2008Q1

REPORT INFORMATION
  Report Type: 
  Country: None (occurrence: None)
  Receive Date: 20080214
  Receipt Date: 20080211
  Transmission Date: 20080703
  Serious: Yes (Death)
  Sender: FDA-Public Use
  Company Number: BR-NOVOPROD-272065

PATIENT

DRUGS (1)
  1. NOVOSEVEN [Suspect]
     Indication: SURGERY
     Dosage: 90 UG/KG, UNK
     Route: 042
     Dates: start: 20080208, end: 20080208

REACTIONS (1)
  - VENTRICULAR FAILURE [None]
